FAERS Safety Report 16849465 (Version 1)
Quarter: 2019Q4

REPORT INFORMATION
  Report Type: Spontaneous
  Country: US (occurrence: US)
  Receive Date: 20190924
  Receipt Date: 20190924
  Transmission Date: 20200122
  Serious: Yes (Hospitalization, Disabling)
  Sender: FDA-Public Use
  Company Number: None

PATIENT
  Age: 85 Year
  Weight: 153 kg

DRUGS (9)
  1. LOVASTATIN. [Concomitant]
     Active Substance: LOVASTATIN
  2. AMLODIPINE BESYLATE. [Concomitant]
     Active Substance: AMLODIPINE BESYLATE
  3. CERTIZINE [Concomitant]
  4. AMOXICILLIN. [Suspect]
     Active Substance: AMOXICILLIN
     Indication: PREOPERATIVE CARE
     Dosage: ?          QUANTITY:21 CAPSULE(S);?
     Route: 048
     Dates: start: 20190912, end: 20190917
  5. LEVOTHYROXINE. [Concomitant]
     Active Substance: LEVOTHYROXINE
  6. ZOLIPDEM [Concomitant]
     Active Substance: ZOLPIDEM TARTRATE
  7. IRBESARTAN. [Concomitant]
     Active Substance: IRBESARTAN
  8. CENTURY SILVER [Concomitant]
  9. KETOCONAZOLE. [Concomitant]
     Active Substance: KETOCONAZOLE

REACTIONS (6)
  - Joint stiffness [None]
  - Myalgia [None]
  - Arthralgia [None]
  - Musculoskeletal stiffness [None]
  - Asthenia [None]
  - Arthritis [None]
